FAERS Safety Report 4735931-6 (Version None)
Quarter: 2005Q3

REPORT INFORMATION
  Report Type: 
  Country: None (occurrence: None)
  Receive Date: 20050721
  Receipt Date: 20050525
  Transmission Date: 20060218
  Serious: No
  Sender: FDA-Public Use
  Company Number: 2005SP001002

PATIENT
  Age: 74 Year
  Sex: Female
  Weight: 83.9154 kg

DRUGS (3)
  1. LUNESTA [Suspect]
     Indication: INSOMNIA
     Dosage: 2 MG;HS;ORAL
     Route: 048
     Dates: start: 20050524, end: 20050101
  2. XANAX [Concomitant]
  3. EFFEXOR [Concomitant]

REACTIONS (6)
  - DRUG ERUPTION [None]
  - DRUG INEFFECTIVE [None]
  - HEART RATE INCREASED [None]
  - INITIAL INSOMNIA [None]
  - NIGHTMARE [None]
  - RASH [None]
